FAERS Safety Report 7597411-2 (Version None)
Quarter: 2011Q3

REPORT INFORMATION
  Report Type: 
  Country: None (occurrence: None)
  Receive Date: 20110708
  Receipt Date: 20110627
  Transmission Date: 20111222
  Serious: Yes (Other)
  Sender: FDA-Public Use
  Company Number: PHHY2011GB57061

PATIENT
  Age: 25 Year
  Sex: Male

DRUGS (3)
  1. AMISULPRIDE [Concomitant]
  2. CLOZAPINE [Suspect]
     Dates: start: 20071001
  3. QUETIAPINE [Concomitant]

REACTIONS (2)
  - NEUTROPENIA [None]
  - PSYCHOTIC DISORDER [None]
